FAERS Safety Report 4996536-5 (Version None)
Quarter: 2006Q2

REPORT INFORMATION
  Report Type: 
  Country: None (occurrence: None)
  Receive Date: 20060509
  Receipt Date: 20060202
  Transmission Date: 20061013
  Serious: Yes (Disabling)
  Sender: FDA-Public Use
  Company Number: PT-AMGEN-UK167652

PATIENT
  Sex: Female
  Weight: 50 kg

DRUGS (9)
  1. NEULASTA [Suspect]
     Indication: CHEMOTHERAPY
     Route: 058
     Dates: start: 20050824, end: 20051206
  2. CYCLOPHOSPHAMIDE [Concomitant]
     Route: 065
     Dates: start: 20050823, end: 20051205
  3. DOXORUBICIN HCL [Concomitant]
     Route: 065
     Dates: start: 20050823, end: 20051205
  4. VINCRISTINE [Concomitant]
     Route: 065
     Dates: start: 20050823, end: 20051205
  5. PREDNISONE TAB [Concomitant]
     Route: 065
     Dates: start: 20050823, end: 20051205
  6. SUSTIVA [Concomitant]
     Route: 048
  7. TENOFOVIR DISOPROXIL FUMARAT [Concomitant]
     Route: 048
  8. BACTRIM [Concomitant]
     Route: 065
  9. LEVOTHYROXINE SODIUM [Concomitant]
     Route: 065

REACTIONS (3)
  - DRUG INEFFECTIVE [None]
  - NEUTROPENIA [None]
  - ORAL CANDIDIASIS [None]
